FAERS Safety Report 15585565 (Version 1)
Quarter: 2018Q4

REPORT INFORMATION
  Report Type: Report from Study
  Country: US (occurrence: US)
  Receive Date: 20181105
  Receipt Date: 20181105
  Transmission Date: 20190205
  Serious: Yes (Hospitalization)
  Sender: FDA-Public Use
  Company Number: US-IPSEN BIOPHARMACEUTICALS, INC.-2018-16477

PATIENT
  Sex: Male

DRUGS (1)
  1. SOMATULINE DEPOT [Suspect]
     Active Substance: LANREOTIDE ACETATE
     Indication: NEUROENDOCRINE TUMOUR
     Dosage: INJECTED IN UPPER BUTTOCKS
     Route: 058
     Dates: start: 20171107

REACTIONS (5)
  - Gallbladder disorder [Unknown]
  - Malaise [Unknown]
  - Muscle disorder [Unknown]
  - Bone density decreased [Unknown]
  - Weight decreased [Unknown]
